FAERS Safety Report 13743409 (Version 2)
Quarter: 2018Q3

REPORT INFORMATION
  Report Type: Spontaneous
  Country: CA (occurrence: CA)
  Receive Date: 20170711
  Receipt Date: 20180706
  Transmission Date: 20181010
  Serious: Yes (Other)
  Sender: FDA-Public Use
  Company Number: CA-BAYER-2017-004959

PATIENT
  Age: 69 Year
  Sex: Female

DRUGS (1)
  1. GADOVIST [Suspect]
     Active Substance: GADOBUTROL
     Indication: NUCLEAR MAGNETIC RESONANCE IMAGING BRAIN
     Dosage: 6.7 ML, ONCE
     Dates: start: 20170204, end: 20170204

REACTIONS (7)
  - Polyneuropathy [Not Recovered/Not Resolved]
  - Genital burning sensation [None]
  - Contrast media allergy [None]
  - Burning sensation [Not Recovered/Not Resolved]
  - Burning sensation [None]
  - Pain in extremity [Not Recovered/Not Resolved]
  - Eye irritation [None]

NARRATIVE: CASE EVENT DATE: 20170204
